FAERS Safety Report 16700557 (Version 2)
Quarter: 2019Q4

REPORT INFORMATION
  Report Type: Report from Study
  Country: US (occurrence: US)
  Receive Date: 20190814
  Receipt Date: 20191120
  Transmission Date: 20200122
  Serious: No
  Sender: FDA-Public Use
  Company Number: PHEH2019US033718

PATIENT
  Sex: Male
  Weight: 109.3 kg

DRUGS (5)
  1. LETAIRIS [Concomitant]
     Active Substance: AMBRISENTAN
     Indication: PRODUCT USED FOR UNKNOWN INDICATION
     Route: 065
  2. ADCIRCA [Concomitant]
     Active Substance: TADALAFIL
     Indication: PULMONARY ARTERIAL HYPERTENSION
     Route: 065
  3. TREPROSTINIL. [Suspect]
     Active Substance: TREPROSTINIL
     Dosage: 34 OT (UNITS CC), Q24H
     Route: 042
  4. TREPROSTINIL. [Suspect]
     Active Substance: TREPROSTINIL
     Indication: PULMONARY ARTERIAL HYPERTENSION
     Dosage: 105 NG/KG/MIN, UNK
     Route: 042
     Dates: start: 20190521
  5. TREPROSTINIL. [Suspect]
     Active Substance: TREPROSTINIL
     Dosage: 94 NG/KG/MIN, UNK
     Route: 042

REACTIONS (1)
  - Weight decreased [Unknown]
